FAERS Safety Report 4620519-8 (Version None)
Quarter: 2005Q1

REPORT INFORMATION
  Report Type: 
  Country: None (occurrence: None)
  Receive Date: 20050324
  Receipt Date: 20050310
  Transmission Date: 20050727
  Serious: Yes (Hospitalization)
  Sender: FDA-Public Use
  Company Number: 2005-BP-03860BP

PATIENT
  Sex: Female

DRUGS (1)
  1. CATAPRES [Suspect]
     Dosage: 0.3 MG (7.5 MG), TO
     Route: 061

REACTIONS (1)
  - COMA [None]
